FAERS Safety Report 19107006 (Version 3)
Quarter: 2022Q1

REPORT INFORMATION
  Report Type: Spontaneous
  Country: GB (occurrence: GB)
  Receive Date: 20210408
  Receipt Date: 20220209
  Transmission Date: 20220423
  Serious: Yes (Disabling)
  Sender: FDA-Public Use
  Company Number: None

PATIENT
  Age: 24 Year
  Sex: Male

DRUGS (10)
  1. SERTRALINE HYDROCHLORIDE [Suspect]
     Active Substance: SERTRALINE HYDROCHLORIDE
     Indication: Antidepressant therapy
     Dosage: 50 MG (INITIALLY)
     Route: 048
     Dates: start: 2014, end: 2014
  2. SERTRALINE HYDROCHLORIDE [Suspect]
     Active Substance: SERTRALINE HYDROCHLORIDE
     Dosage: 100 MG
     Route: 048
     Dates: start: 2014
  3. SERTRALINE HYDROCHLORIDE [Suspect]
     Active Substance: SERTRALINE HYDROCHLORIDE
     Dosage: UNK
     Dates: start: 20150615
  4. TEMAZEPAM [Suspect]
     Active Substance: TEMAZEPAM
     Indication: Poor quality sleep
     Dosage: 10 MG, DAILY
     Route: 048
  5. RISPERIDONE [Suspect]
     Active Substance: RISPERIDONE
     Dosage: UNK
     Route: 048
  6. MIRTAZAPINE [Suspect]
     Active Substance: MIRTAZAPINE
     Indication: Antidepressant therapy
     Dosage: 7.5 MG - UPTITRATED TO 45 MG, DAILY THEN REDUCED DOWN TO STOP
     Route: 048
     Dates: start: 2014, end: 2015
  7. CIPRALEX [Suspect]
     Active Substance: ESCITALOPRAM OXALATE
     Indication: Antidepressant therapy
     Dosage: 10 MG, DAILY
     Route: 048
     Dates: start: 201507, end: 201509
  8. CITALOPRAM [Suspect]
     Active Substance: CITALOPRAM HYDROBROMIDE
     Dosage: 10 MG
     Dates: start: 201507
  9. TRAZODONE [Suspect]
     Active Substance: TRAZODONE HYDROCHLORIDE
     Indication: Antidepressant therapy
     Dosage: 50 MG (INITIALLY) INCREASED TO 100 MG, DAILY THEN REDUCED TO 50 MG BEFORE STOPPING
     Route: 048
     Dates: start: 2015, end: 201507
  10. TRAZODONE [Suspect]
     Active Substance: TRAZODONE HYDROCHLORIDE
     Indication: Poor quality sleep
     Dosage: 100 MG, DAILY
     Route: 048
     Dates: start: 2015, end: 201507

REACTIONS (25)
  - Somnolence [Unknown]
  - Agitation [Unknown]
  - Suicidal ideation [Unknown]
  - Anger [Unknown]
  - Homicidal ideation [Unknown]
  - Mood swings [Unknown]
  - Psychotic disorder [Unknown]
  - Aggression [Unknown]
  - Intrusive thoughts [Unknown]
  - Tachyphrenia [Unknown]
  - Weight increased [Unknown]
  - Confusional state [Unknown]
  - Headache [Unknown]
  - Feeling abnormal [Unknown]
  - Hallucination, visual [Unknown]
  - Hallucination, auditory [Unknown]
  - Irritability [Unknown]
  - Withdrawal syndrome [Unknown]
  - Nausea [Unknown]
  - Paranoia [Unknown]
  - Suicide attempt [Unknown]
  - Amnesia [Unknown]
  - Loss of libido [Unknown]
  - Sedation [Unknown]
  - Insomnia [Unknown]

NARRATIVE: CASE EVENT DATE: 20200120
